FAERS Safety Report 10045440 (Version 3)
Quarter: 2015Q1

REPORT INFORMATION
  Report Type: Report from Study
  Country: US (occurrence: US)
  Receive Date: 20140328
  Receipt Date: 20150320
  Transmission Date: 20150720
  Serious: Yes (Life-Threatening, Hospitalization)
  Sender: FDA-Public Use
  Company Number: US-TARO-2014P1002732

PATIENT
  Age: 79 Year
  Sex: Male
  Weight: 70 kg

DRUGS (5)
  1. ASPIRIN. [Concomitant]
     Active Substance: ASPIRIN
     Route: 048
     Dates: start: 1991
  2. ALDARA [Suspect]
     Active Substance: IMIQUIMOD
     Indication: ACTINIC KERATOSIS
     Dosage: BIW
     Route: 061
     Dates: start: 20140227, end: 20140519
  3. CARAC [Concomitant]
     Active Substance: FLUOROURACIL
     Dosage: QD
     Route: 061
     Dates: start: 2009, end: 20140120
  4. METOPROLOLTARTRATE [Concomitant]
     Route: 048
     Dates: start: 1991
  5. SIMVASTATIN. [Concomitant]
     Active Substance: SIMVASTATIN
     Route: 048
     Dates: start: 2009

REACTIONS (2)
  - Bacteraemia [Recovering/Resolving]
  - Nephrolithiasis [Recovering/Resolving]

NARRATIVE: CASE EVENT DATE: 20140316
